FAERS Safety Report 21382088 (Version 5)
Quarter: 2023Q2

REPORT INFORMATION
  Report Type: Report from Study
  Country: US (occurrence: US)
  Receive Date: 20220927
  Receipt Date: 20230622
  Transmission Date: 20230721
  Serious: Yes (Hospitalization, Other)
  Sender: FDA-Public Use
  Company Number: US-XERIS PHARMACEUTICALS-2022XER00333

PATIENT
  Sex: Female
  Weight: 68.934 kg

DRUGS (9)
  1. RECORLEV [Suspect]
     Active Substance: LEVOKETOCONAZOLE
     Indication: Pituitary-dependent Cushing^s syndrome
     Dosage: 3 TABLETS (450 MG), 2X/DAY
     Route: 048
     Dates: start: 20220718
  2. TOPAMAX [Concomitant]
     Active Substance: TOPIRAMATE
     Dosage: UNK
     Dates: end: 202212
  3. GABAPENTIN [Concomitant]
     Active Substance: GABAPENTIN
  4. BOTOX [Concomitant]
     Active Substance: ONABOTULINUMTOXINA
     Dosage: UNK
     Dates: start: 202212
  5. METFORMIN [Concomitant]
     Active Substance: METFORMIN HYDROCHLORIDE
  6. INSULIN NOS [Concomitant]
     Active Substance: INSULIN NOS
  7. TYLENOL [Concomitant]
     Active Substance: ACETAMINOPHEN
     Dosage: UNK, AS NEEDED
  8. SPIRONOLACTONE [Concomitant]
     Active Substance: SPIRONOLACTONE
  9. FENOFIBRATE [Concomitant]
     Active Substance: FENOFIBRATE

REACTIONS (18)
  - Hospitalisation [Not Recovered/Not Resolved]
  - Bell^s palsy [Not Recovered/Not Resolved]
  - Pituitary tumour [Not Recovered/Not Resolved]
  - Decreased appetite [Recovering/Resolving]
  - Abdominal pain upper [Not Recovered/Not Resolved]
  - Abdominal pain [Not Recovered/Not Resolved]
  - Menstrual headache [Recovering/Resolving]
  - Hypoaesthesia [Recovering/Resolving]
  - Pain [Recovering/Resolving]
  - Photophobia [Recovering/Resolving]
  - Gastrooesophageal reflux disease [Not Recovered/Not Resolved]
  - Asthenia [Unknown]
  - Blood calcium increased [Not Recovered/Not Resolved]
  - Abdominal tenderness [Not Recovered/Not Resolved]
  - Pruritus [Recovering/Resolving]
  - Headache [Not Recovered/Not Resolved]
  - Gastric disorder [Not Recovered/Not Resolved]
  - Dizziness [Recovered/Resolved]

NARRATIVE: CASE EVENT DATE: 20220101
